FAERS Safety Report 8136967-8 (Version None)
Quarter: 2012Q1

REPORT INFORMATION
  Report Type: 
  Country: None (occurrence: None)
  Receive Date: 20120214
  Receipt Date: 20120206
  Transmission Date: 20120608
  Serious: Yes (Other)
  Sender: FDA-Public Use
  Company Number: US-ASTRAZENECA-2011SE71234

PATIENT
  Age: 60 Year
  Sex: Female
  Weight: 93.4 kg

DRUGS (14)
  1. CYMBALTA [Concomitant]
     Indication: ANTIDEPRESSANT THERAPY
     Route: 048
  2. KLONAPIN [Concomitant]
     Indication: ANXIETY
     Route: 048
  3. TRAMADOL HCL [Concomitant]
     Indication: SCIATICA
     Route: 048
  4. NATURAL HORMONE COMPOUNDED OF PROGESTERONE AND ESTROGEN [Concomitant]
     Indication: HORMONE REPLACEMENT THERAPY
     Route: 048
  5. VITAMIN D [Concomitant]
     Indication: VITAMIN SUPPLEMENTATION
     Route: 048
  6. SEROQUEL XR [Suspect]
     Indication: BIPOLAR DISORDER
     Route: 048
     Dates: start: 20060101
  7. SEROQUEL XR [Suspect]
     Route: 048
  8. SEROQUEL XR [Suspect]
     Route: 048
  9. KLONAPIN [Concomitant]
     Indication: SLEEP DISORDER
     Route: 048
  10. CRESTOR [Suspect]
     Indication: HYPERCHOLESTEROLAEMIA
     Route: 048
  11. THYROID TAB [Concomitant]
     Indication: THYROID DISORDER
     Route: 048
  12. METFORMIN HCL [Concomitant]
     Indication: DIABETES MELLITUS
     Route: 048
  13. CREAM GM CR CMPD [Concomitant]
     Indication: OESTROGEN THERAPY
     Route: 061
  14. ACYCLOVIR [Concomitant]
     Indication: GENITAL HERPES
     Route: 048

REACTIONS (10)
  - GAIT DISTURBANCE [None]
  - THERAPEUTIC RESPONSE UNEXPECTED [None]
  - DRUG INEFFECTIVE [None]
  - UPPER LIMB FRACTURE [None]
  - MALAISE [None]
  - FALL [None]
  - MENTAL DISORDER [None]
  - BACK INJURY [None]
  - DRUG DOSE OMISSION [None]
  - JOINT SWELLING [None]
